FAERS Safety Report 18025335 (Version 2)
Quarter: 2020Q3

REPORT INFORMATION
  Report Type: Spontaneous
  Country: JP (occurrence: JP)
  Receive Date: 20200715
  Receipt Date: 20200804
  Transmission Date: 20201103
  Serious: Yes (Other)
  Sender: FDA-Public Use
  Company Number: JP-ACCORD-189496

PATIENT
  Age: 68 Year
  Sex: Male

DRUGS (5)
  1. OXALIPLATIN. [Suspect]
     Active Substance: OXALIPLATIN
     Indication: RECTAL CANCER
     Dates: start: 201706
  2. LEVOFOLINATE [Suspect]
     Active Substance: LEVOLEUCOVORIN CALCIUM
     Indication: RECTAL CANCER
     Dates: start: 201706
  3. FLUOROURACIL. [Suspect]
     Active Substance: FLUOROURACIL
     Indication: RECTAL CANCER
     Dosage: (RAPID) 583 MG, 5?FU (SUSTAINED) 3,499?MG
     Dates: start: 201706
  4. PREGABALIN. [Suspect]
     Active Substance: PREGABALIN
     Indication: SPINAL OSTEOARTHRITIS
  5. PANITUMUMAB [Suspect]
     Active Substance: PANITUMUMAB
     Indication: RECTAL CANCER
     Dates: start: 201706

REACTIONS (1)
  - Neuropathy peripheral [Not Recovered/Not Resolved]
